FAERS Safety Report 14719880 (Version 1)
Quarter: 2018Q2

REPORT INFORMATION
  Report Type: Spontaneous
  Country: CA (occurrence: CA)
  Receive Date: 20180405
  Receipt Date: 20180405
  Transmission Date: 20180711
  Serious: Yes (Other)
  Sender: FDA-Public Use
  Company Number: CA-PFIZER INC-2018097357

PATIENT
  Age: 53 Year
  Sex: Female
  Weight: 71.6 kg

DRUGS (2)
  1. IBRANCE [Suspect]
     Active Substance: PALBOCICLIB
     Indication: BREAST CANCER
     Dosage: 125 MG, CYCLIC (ONCE DAILY FOR 21 DAYS AND THEN OFF FOR 7 DAYS)
     Route: 048
     Dates: start: 201802
  2. BONEFOS [Concomitant]
     Active Substance: CLODRONATE DISODIUM
     Indication: BONE DISORDER
     Dosage: 1600 MG, ONCE A DAY
     Route: 048
     Dates: start: 2017

REACTIONS (2)
  - Rash [Unknown]
  - Dysphagia [Recovering/Resolving]

NARRATIVE: CASE EVENT DATE: 201802
